FAERS Safety Report 8609656-0 (Version None)
Quarter: 2012Q3

REPORT INFORMATION
  Report Type: 
  Country: None (occurrence: None)
  Receive Date: 20120821
  Receipt Date: 20120806
  Transmission Date: 20120928
  Serious: Yes (Hospitalization)
  Sender: FDA-Public Use
  Company Number: US-ACTELION-A-US2012-63373

PATIENT
  Age: 52 Year
  Sex: Female

DRUGS (5)
  1. ASPIRIN [Concomitant]
  2. PRADAXA [Concomitant]
  3. REVATIO [Concomitant]
  4. TRACLEER [Suspect]
     Indication: PULMONARY ARTERIAL HYPERTENSION
     Dosage: UNK
     Route: 048
     Dates: start: 20120313
  5. ADCIRCA [Concomitant]

REACTIONS (9)
  - DYSPNOEA [None]
  - OEDEMA PERIPHERAL [None]
  - PYREXIA [None]
  - PAIN IN EXTREMITY [None]
  - HEADACHE [None]
  - HYPERHIDROSIS [None]
  - SINUSITIS [None]
  - RASH [None]
  - NAUSEA [None]
